FAERS Safety Report 5989993-9 (Version None)
Quarter: 2008Q4

REPORT INFORMATION
  Report Type: 
  Country: None (occurrence: None)
  Receive Date: 20081209
  Receipt Date: 20081209
  Transmission Date: 20090506
  Serious: Yes (Other)
  Sender: FDA-Public Use
  Company Number: None

PATIENT
  Age: 22 Year
  Sex: Male
  Weight: 99.7913 kg

DRUGS (1)
  1. EFFEXOR XR [Suspect]
     Indication: PANIC DISORDER WITHOUT AGORAPHOBIA
     Dosage: 37.5 MG - 300 MG ONCE DAILY PO
     Route: 048
     Dates: start: 20070310, end: 20081115

REACTIONS (17)
  - ABNORMAL BEHAVIOUR [None]
  - ANXIETY [None]
  - BURNING SENSATION [None]
  - CONDITION AGGRAVATED [None]
  - DELUSION [None]
  - DEPRESSION [None]
  - DISORIENTATION [None]
  - DISSOCIATION [None]
  - DISTURBANCE IN ATTENTION [None]
  - FEELING ABNORMAL [None]
  - HYPOPHAGIA [None]
  - JUDGEMENT IMPAIRED [None]
  - MANIA [None]
  - PARANOIA [None]
  - SOCIAL PHOBIA [None]
  - WEIGHT INCREASED [None]
  - WITHDRAWAL SYNDROME [None]
